FAERS Safety Report 5113157-4 (Version None)
Quarter: 2006Q3

REPORT INFORMATION
  Report Type: 
  Country: None (occurrence: None)
  Receive Date: 20060922
  Receipt Date: 20021227
  Transmission Date: 20061208
  Serious: Yes (Hospitalization)
  Sender: FDA-Public Use
  Company Number: JP-ABBOTT-02P-087-0207304-00

PATIENT
  Sex: Male

DRUGS (8)
  1. CLARITHROMYCIN [Suspect]
     Indication: HELICOBACTER INFECTION
     Route: 048
     Dates: start: 20021211, end: 20021217
  2. TAKEPRON CAPSULES [Suspect]
     Indication: HELICOBACTER INFECTION
     Route: 048
     Dates: start: 20021211, end: 20021217
  3. AMOXICILLIN TRIHYDRATE [Suspect]
     Indication: HELICOBACTER INFECTION
     Dates: start: 20021211, end: 20021217
  4. MACROGOL [Concomitant]
     Indication: COLONOSCOPY
     Route: 048
     Dates: start: 20021218, end: 20021218
  5. MACROGOL [Concomitant]
     Indication: PREMEDICATION
  6. DIMETICONE [Concomitant]
     Indication: PREMEDICATION
     Route: 048
     Dates: start: 20021218, end: 20021218
  7. HYOSCINE HBR HYT [Concomitant]
     Indication: PREMEDICATION
     Route: 042
     Dates: start: 20021218, end: 20021218
  8. DIAZEPAM [Concomitant]
     Indication: PREMEDICATION
     Route: 042
     Dates: start: 20021218, end: 20021218

REACTIONS (10)
  - ABDOMINAL PAIN [None]
  - COLITIS [None]
  - COLITIS ISCHAEMIC [None]
  - GASTROINTESTINAL DISORDER [None]
  - GASTROINTESTINAL HAEMORRHAGE [None]
  - HAEMATOCHEZIA [None]
  - INFECTION [None]
  - INFLAMMATION [None]
  - OEDEMA MUCOSAL [None]
  - WHITE BLOOD CELL COUNT INCREASED [None]
